FAERS Safety Report 17353351 (Version 1)
Quarter: 2020Q1

REPORT INFORMATION
  Report Type: Report from Study
  Country: ES (occurrence: ES)
  Receive Date: 20200131
  Receipt Date: 20200131
  Transmission Date: 20200409
  Serious: Yes (Hospitalization)
  Sender: FDA-Public Use
  Company Number: ES-TEVA-2020-ES-1176930

PATIENT
  Age: 78 Year
  Sex: Male

DRUGS (6)
  1. MICARDIS [Interacting]
     Active Substance: TELMISARTAN
     Indication: HYPERTENSION
     Route: 065
     Dates: start: 2015
  2. CARVEDILOL (2431A) [Interacting]
     Active Substance: CARVEDILOL
     Indication: ISCHAEMIC CARDIOMYOPATHY
     Route: 065
     Dates: end: 20180521
  3. ROSUVASTATINA (8215A) [Concomitant]
     Active Substance: ROSUVASTATIN
     Indication: DYSLIPIDAEMIA
     Route: 065
     Dates: end: 20180521
  4. TAMSULOSINA HIDROCLORURO (2751CH) [Suspect]
     Active Substance: TAMSULOSIN HYDROCHLORIDE
     Indication: HYPERTENSION
     Route: 065
     Dates: end: 20180521
  5. METFORMINA (1359A) [Concomitant]
     Active Substance: METFORMIN HYDROCHLORIDE
     Dosage: 2 DOSAGE FORMS
     Route: 048
     Dates: end: 20180521
  6. ACETILSALICILICO ACIDO (176A) [Interacting]
     Active Substance: ASPIRIN
     Route: 048
     Dates: start: 2015

REACTIONS (3)
  - Hyperkalaemia [Recovered/Resolved]
  - Acute kidney injury [Recovered/Resolved]
  - Drug interaction [Unknown]

NARRATIVE: CASE EVENT DATE: 20180521
